FAERS Safety Report 12777862 (Version 1)
Quarter: 2016Q3

REPORT INFORMATION
  Report Type: Spontaneous
  Country: US (occurrence: US)
  Receive Date: 20160924
  Receipt Date: 20160924
  Transmission Date: 20161109
  Serious: No
  Sender: FDA-Public Use
  Company Number: US-JAZZ-2016-US-010859

PATIENT
  Sex: Female

DRUGS (31)
  1. IRON [Concomitant]
     Active Substance: IRON
  2. XYREM [Suspect]
     Active Substance: SODIUM OXYBATE
     Indication: CATAPLEXY
     Dosage: DOSE ADJUSTMENTS
     Route: 048
     Dates: start: 200704, end: 201304
  3. CLONIDINE. [Suspect]
     Active Substance: CLONIDINE
     Indication: PRODUCT USED FOR UNKNOWN INDICATION
  4. CLONIDINE HCL [Concomitant]
     Active Substance: CLONIDINE HYDROCHLORIDE
  5. CYMBALTA [Concomitant]
     Active Substance: DULOXETINE HYDROCHLORIDE
  6. PROZAC [Concomitant]
     Active Substance: FLUOXETINE HYDROCHLORIDE
  7. XYREM [Suspect]
     Active Substance: SODIUM OXYBATE
     Indication: NARCOLEPSY
     Dosage: 2.25 G, BID
     Route: 048
     Dates: start: 200703, end: 200704
  8. FLUCONAZOLE. [Concomitant]
     Active Substance: FLUCONAZOLE
  9. ALBUTEROL SULFATE. [Concomitant]
     Active Substance: ALBUTEROL SULFATE
  10. NUVIGIL [Concomitant]
     Active Substance: ARMODAFINIL
  11. HYDROCHLOROTHIAZIDE. [Concomitant]
     Active Substance: HYDROCHLOROTHIAZIDE
  12. NIFEDICAL XL [Concomitant]
     Active Substance: NIFEDIPINE
  13. VITAMIN B COMPLEX [Concomitant]
     Active Substance: CYANOCOBALAMIN\DEXPANTHENOL\NIACINAMIDE\PYRIDOXINE HYDROCHLORIDE\RIBOFLAVIN 5^-PHOSPHATE SODIUM\THIAMINE HYDROCHLORIDE\VITAMIN B COMPLEX
  14. XYREM [Suspect]
     Active Substance: SODIUM OXYBATE
     Dosage: 4.5 G, BID
     Route: 048
     Dates: start: 201304
  15. LORATADINE. [Concomitant]
     Active Substance: LORATADINE
  16. OMEGA-3 ACIDS [Concomitant]
     Active Substance: OMEGA-3 FATTY ACIDS
  17. HYDROXYZINE HCL [Concomitant]
     Active Substance: HYDROXYZINE HYDROCHLORIDE
  18. LISINOPRIL. [Concomitant]
     Active Substance: LISINOPRIL
  19. VITAMINS [Concomitant]
     Active Substance: VITAMINS
  20. FLONASE [Concomitant]
     Active Substance: FLUTICASONE PROPIONATE
  21. VITAMIN B12 [Concomitant]
     Active Substance: CYANOCOBALAMIN
  22. MICROZIDE [Concomitant]
     Active Substance: HYDROCHLOROTHIAZIDE
  23. MUCINEX [Concomitant]
     Active Substance: GUAIFENESIN
  24. PROAIR HFA [Concomitant]
     Active Substance: ALBUTEROL SULFATE
  25. IBUPROFEN. [Concomitant]
     Active Substance: IBUPROFEN
  26. OLUX [Concomitant]
     Active Substance: CLOBETASOL PROPIONATE
  27. GABAPENTIN. [Concomitant]
     Active Substance: GABAPENTIN
  28. NASONEX [Concomitant]
     Active Substance: MOMETASONE FUROATE
  29. LORAZEPAM. [Concomitant]
     Active Substance: LORAZEPAM
  30. CLONAZEPAM. [Concomitant]
     Active Substance: CLONAZEPAM
  31. CATAPRES [Concomitant]
     Active Substance: CLONIDINE HYDROCHLORIDE

REACTIONS (2)
  - Rash [Unknown]
  - Hyperhidrosis [Unknown]
